FAERS Safety Report 7529547-6 (Version None)
Quarter: 2011Q2

REPORT INFORMATION
  Report Type: 
  Country: None (occurrence: None)
  Receive Date: 20110607
  Receipt Date: 20050202
  Transmission Date: 20111010
  Serious: Yes (Death)
  Sender: FDA-Public Use
  Company Number: PHHO2005ES02073

PATIENT
  Sex: Female

DRUGS (6)
  1. GLEEVEC [Suspect]
     Indication: CHRONIC MYELOID LEUKAEMIA
     Dosage: 400 MG, DAILY
     Route: 048
     Dates: start: 20040903, end: 20041209
  2. ENALAPRIL MALEATE [Concomitant]
  3. DIGOXIN [Concomitant]
  4. CEFTRIAXONE [Concomitant]
  5. ALDACTONE [Concomitant]
  6. FUROSEMIDE [Concomitant]

REACTIONS (6)
  - PNEUMONIA [None]
  - HAEMOTHORAX [None]
  - CARDIAC FAILURE [None]
  - PLEURAL EFFUSION [None]
  - ASPIRATION PLEURAL CAVITY [None]
  - RESPIRATORY FAILURE [None]
